FAERS Safety Report 21296604 (Version 1)
Quarter: 2022Q3

REPORT INFORMATION
  Report Type: Spontaneous
  Country: CN (occurrence: CN)
  Receive Date: 20220906
  Receipt Date: 20220906
  Transmission Date: 20221027
  Serious: Yes (Hospitalization, Other)
  Sender: FDA-Public Use
  Company Number: CN-BAYER-2022A124449

PATIENT
  Age: 58 Year
  Sex: Male

DRUGS (6)
  1. XARELTO [Suspect]
     Active Substance: RIVAROXABAN
     Indication: Anticoagulant therapy
     Dosage: 10 MG, QD
     Route: 048
     Dates: start: 20220814, end: 20220818
  2. RECOMBINANT HUMAN BRAIN NATRIURETIC PEPTIDE [Concomitant]
     Indication: Symptomatic treatment
     Dosage: UNK
     Dates: start: 20220814
  3. SACUBITRIL\VALSARTAN [Concomitant]
     Active Substance: SACUBITRIL\VALSARTAN
     Indication: Symptomatic treatment
     Dosage: UNK
     Dates: start: 20220814
  4. METOPROLOL [Concomitant]
     Active Substance: METOPROLOL
     Indication: Symptomatic treatment
     Dosage: UNK
     Dates: start: 20220814
  5. TORSEMIDE [Concomitant]
     Active Substance: TORSEMIDE
     Indication: Symptomatic treatment
     Dosage: UNK
     Dates: start: 20220814
  6. POTASSIUM CHLORIDE [Concomitant]
     Active Substance: POTASSIUM CHLORIDE
     Indication: Symptomatic treatment
     Dosage: UNK
     Dates: start: 20220814

REACTIONS (4)
  - Gastrointestinal haemorrhage [Recovering/Resolving]
  - Diarrhoea [Recovering/Resolving]
  - Melaena [Recovering/Resolving]
  - Haematochezia [Recovering/Resolving]

NARRATIVE: CASE EVENT DATE: 20220818
